FAERS Safety Report 11528659 (Version 2)
Quarter: 2015Q4

REPORT INFORMATION
  Report Type: Report from Study
  Country: KR (occurrence: KR)
  Receive Date: 20150921
  Receipt Date: 20151011
  Transmission Date: 20160304
  Serious: No
  Sender: FDA-Public Use
  Company Number: PHHY2015KR113313

PATIENT
  Age: 45 Year
  Sex: Female

DRUGS (7)
  1. LACTICARE HC//HYDROCORTISONE [Concomitant]
     Indication: RASH
     Dosage: 1 DF, UNK (1 BT)
     Route: 061
     Dates: start: 20140124, end: 20140206
  2. TASIGNA [Suspect]
     Active Substance: NILOTINIB
     Indication: CHRONIC MYELOID LEUKAEMIA
     Dosage: 600 MG, QD
     Route: 048
     Dates: start: 20131220, end: 20131226
  3. NAXEN-F [Concomitant]
     Indication: ARTHRALGIA
  4. NAXEN-F [Concomitant]
     Indication: MYALGIA
     Dosage: 1000 MG, UNK
     Route: 048
     Dates: start: 20140228, end: 20140320
  5. TASIGNA [Suspect]
     Active Substance: NILOTINIB
     Dosage: 600 MG, QD
     Route: 048
     Dates: start: 20140117, end: 20140123
  6. ADIPAM [Concomitant]
     Indication: RASH
     Dosage: 60 MG, UNK
     Route: 048
     Dates: start: 20140124, end: 20140206
  7. TASIGNA [Suspect]
     Active Substance: NILOTINIB
     Dosage: 600 MG, QD
     Route: 048
     Dates: start: 20140207, end: 20140313

REACTIONS (1)
  - Haemorrhoids [Recovered/Resolved]

NARRATIVE: CASE EVENT DATE: 20131226
